FAERS Safety Report 23732337 (Version 2)
Quarter: 2024Q2

REPORT INFORMATION
  Report Type: Spontaneous
  Country: US (occurrence: US)
  Receive Date: 20240411
  Receipt Date: 20240513
  Transmission Date: 20240716
  Serious: No
  Sender: FDA-Public Use
  Company Number: US-MYLANLABS-2024M1030421

PATIENT
  Age: 93 Year
  Sex: Female

DRUGS (3)
  1. TYRVAYA [Suspect]
     Active Substance: VARENICLINE TARTRATE
     Indication: Dry eye
     Dosage: 0.03 MILLIGRAM, BID, (1 SPRAY IN EACH NOSTRIL, TWICE A DAY)
     Route: 045
  2. HYDROCODONE [Concomitant]
     Active Substance: HYDROCODONE
     Indication: Arthritis
     Dosage: 7.5 MILLIGRAM
     Route: 065
  3. METOPROLOL [Concomitant]
     Active Substance: METOPROLOL
     Indication: Blood pressure abnormal
     Dosage: 25 MILLIGRAM
     Route: 065

REACTIONS (2)
  - Sneezing [Unknown]
  - Product lot number issue [Unknown]

NARRATIVE: CASE EVENT DATE: 20240101
